FAERS Safety Report 5361930-X (Version None)
Quarter: 2007Q2

REPORT INFORMATION
  Report Type: 
  Country: None (occurrence: None)
  Receive Date: 20070619
  Receipt Date: 20070613
  Transmission Date: 20071010
  Serious: Yes (Hospitalization)
  Sender: FDA-Public Use
  Company Number: US-ABBOTT-07P-163-0371421-00

PATIENT
  Age: 37 Year
  Sex: Male
  Weight: 60 kg

DRUGS (2)
  1. DEPAKOTE [Suspect]
     Indication: CONVULSION
     Route: 048
     Dates: end: 20070501
  2. DEPACON [Suspect]
     Indication: CONVULSION
     Route: 042
     Dates: start: 20070501, end: 20070501

REACTIONS (2)
  - APPENDICITIS PERFORATED [None]
  - CONVULSION [None]
